FAERS Safety Report 5083460-5 (Version None)
Quarter: 2006Q3

REPORT INFORMATION
  Report Type: 
  Country: None (occurrence: None)
  Receive Date: 20060818
  Receipt Date: 20060714
  Transmission Date: 20061208
  Serious: Yes (Death, Hospitalization, Other)
  Sender: FDA-Public Use
  Company Number: PHBS2006JP10464

PATIENT
  Age: 20 Year
  Sex: Male

DRUGS (3)
  1. NEORAL [Suspect]
     Indication: COLITIS ULCERATIVE
     Dosage: 150 MG/D
     Route: 048
     Dates: end: 20060206
  2. ADRENOCORTICOTROPHIC HORMONE [Suspect]
     Indication: COLITIS ULCERATIVE
     Dosage: 20 MG/D
     Route: 048
  3. PENTASA [Concomitant]
     Dosage: 20 MG/D

REACTIONS (20)
  - ANAEMIA [None]
  - BACK PAIN [None]
  - BLOOD PRESSURE DECREASED [None]
  - CHEST PAIN [None]
  - COAGULATION TIME PROLONGED [None]
  - DEPRESSED LEVEL OF CONSCIOUSNESS [None]
  - EPISTAXIS [None]
  - HAEMATOCHEZIA [None]
  - HEPATIC ENZYME INCREASED [None]
  - HEPATIC FAILURE [None]
  - HEPATIC FUNCTION ABNORMAL [None]
  - HEPATOCELLULAR DAMAGE [None]
  - HERPES ZOSTER [None]
  - MELAENA [None]
  - MULTI-ORGAN FAILURE [None]
  - OLIGURIA [None]
  - PLATELET COUNT DECREASED [None]
  - SEPSIS [None]
  - SHOCK [None]
  - STAPHYLOCOCCAL INFECTION [None]
